FAERS Safety Report 18229614 (Version 1)
Quarter: 2020Q3

REPORT INFORMATION
  Report Type: Report from Study
  Country: BR (occurrence: BR)
  Receive Date: 20200903
  Receipt Date: 20200903
  Transmission Date: 20201103
  Serious: Yes (Hospitalization, Other)
  Sender: FDA-Public Use
  Company Number: BR-JNJFOC-20200839373

PATIENT
  Age: 73 Year
  Sex: Female

DRUGS (5)
  1. NIMESULIDE [Concomitant]
     Active Substance: NIMESULIDE
  2. SIMPONI [Suspect]
     Active Substance: GOLIMUMAB
     Indication: RHEUMATOID ARTHRITIS
     Route: 058
     Dates: start: 20170819
  3. PREDNISONE. [Concomitant]
     Active Substance: PREDNISONE
  4. FAMOTIDINE. [Concomitant]
     Active Substance: FAMOTIDINE
  5. CODEINE [Concomitant]
     Active Substance: CODEINE

REACTIONS (6)
  - Product dose omission issue [Unknown]
  - Cerebral thrombosis [Not Recovered/Not Resolved]
  - Seizure [Not Recovered/Not Resolved]
  - Rheumatoid arthritis [Unknown]
  - Fall [Not Recovered/Not Resolved]
  - Nosocomial infection [Not Recovered/Not Resolved]

NARRATIVE: CASE EVENT DATE: 2020
